FAERS Safety Report 8371332-X (Version None)
Quarter: 2012Q2

REPORT INFORMATION
  Report Type: 
  Country: None (occurrence: None)
  Receive Date: 20120518
  Receipt Date: 20120509
  Transmission Date: 20120825
  Serious: Yes (Hospitalization)
  Sender: FDA-Public Use
  Company Number: AU-JNJFOC-20120402969

PATIENT
  Sex: Female
  Weight: 67.2 kg

DRUGS (4)
  1. REMICADE [Suspect]
     Route: 042
     Dates: start: 20110101
  2. REMICADE [Suspect]
     Dosage: APPROX. 4 YEARS AGO
     Route: 042
  3. REMICADE [Suspect]
     Indication: ANKYLOSING SPONDYLITIS
     Route: 042
     Dates: start: 20120404
  4. REMICADE [Suspect]
     Route: 042
     Dates: start: 20110711

REACTIONS (5)
  - INFUSION RELATED REACTION [None]
  - SYSTEMIC LUPUS ERYTHEMATOSUS [None]
  - PRURITUS [None]
  - JOINT SWELLING [None]
  - SHOCK [None]
